FAERS Safety Report 18440499 (Version 1)
Quarter: 2020Q4

REPORT INFORMATION
  Report Type: Report from Study
  Country: None (occurrence: IT)
  Receive Date: 20201029
  Receipt Date: 20201029
  Transmission Date: 20210114
  Serious: Yes (Hospitalization)
  Sender: FDA-Public Use
  Company Number: IT-ABBVIE-20K-083-3624219-00

PATIENT
  Age: 80 Year
  Sex: Male
  Weight: 55 kg

DRUGS (3)
  1. AZACITIDINE. [Suspect]
     Active Substance: AZACITIDINE
     Indication: PRODUCT USED FOR UNKNOWN INDICATION
     Route: 065
  2. VENETOCLAX. [Suspect]
     Active Substance: VENETOCLAX
     Indication: ACUTE MYELOID LEUKAEMIA
     Route: 048
     Dates: start: 20200504, end: 20201014
  3. VIDAZA [Concomitant]
     Active Substance: AZACITIDINE
     Indication: ACUTE MYELOID LEUKAEMIA
     Route: 058
     Dates: start: 20200402, end: 20201014

REACTIONS (1)
  - Melaena [Unknown]

NARRATIVE: CASE EVENT DATE: 20201014
